FAERS Safety Report 5201498-1 (Version None)
Quarter: 2007Q1

REPORT INFORMATION
  Report Type: 
  Country: None (occurrence: None)
  Receive Date: 20070104
  Receipt Date: 20061220
  Transmission Date: 20070707
  Serious: Yes (Other)
  Sender: FDA-Public Use
  Company Number: S06-FRA-05124-01

PATIENT
  Age: 41 Year
  Sex: Female

DRUGS (3)
  1. SEROPLEX (ESCITALOPRAM) [Suspect]
     Dosage: 10 MG QD PO
     Route: 048
     Dates: start: 20060902, end: 20061009
  2. MAGNESIUM [Concomitant]
  3. PRAZEPAM [Concomitant]

REACTIONS (1)
  - GINGIVITIS ULCERATIVE [None]
